FAERS Safety Report 4337948-2 (Version None)
Quarter: 2004Q1

REPORT INFORMATION
  Report Type: 
  Country: None (occurrence: None)
  Receive Date: 20040329
  Receipt Date: 20040127
  Transmission Date: 20041129
  Serious: No
  Sender: FDA-Public Use
  Company Number: USA040157728

PATIENT
  Age: 10 Year
  Sex: Male
  Weight: 24 kg

DRUGS (1)
  1. STRATTERA [Suspect]
     Dosage: 25 MG/1 DAY

REACTIONS (3)
  - DRUG INEFFECTIVE [None]
  - DYSGRAPHIA [None]
  - SENSORY INTEGRATIVE DYSFUNCTION [None]
